FAERS Safety Report 6751371-2 (Version None)
Quarter: 2010Q2

REPORT INFORMATION
  Report Type: 
  Country: None (occurrence: None)
  Receive Date: 20100526
  Receipt Date: 20100420
  Transmission Date: 20101027
  Serious: No
  Sender: FDA-Public Use
  Company Number: 307587

PATIENT
  Age: 91 Year
  Sex: Female

DRUGS (1)
  1. VICTOZA [Suspect]
     Indication: TYPE 2 DIABETES MELLITUS
     Dosage: 1.2 IU, QD, SUBCUTANEOUS
     Route: 058
     Dates: start: 20100401

REACTIONS (1)
  - DIARRHOEA [None]
